FAERS Safety Report 21302798 (Version 8)
Quarter: 2023Q1

REPORT INFORMATION
  Report Type: Report from Study
  Country: US (occurrence: US)
  Receive Date: 20220907
  Receipt Date: 20230325
  Transmission Date: 20230418
  Serious: No
  Sender: FDA-Public Use
  Company Number: US-NOVARTISTESTPH-NVSC2022US199438

PATIENT
  Age: 47 Year
  Sex: Male

DRUGS (2)
  1. KESIMPTA [Suspect]
     Active Substance: OFATUMUMAB
     Indication: Multiple sclerosis
     Dosage: 20 DRP, QMO (GTT)
     Route: 058
     Dates: start: 20220729
  2. KESIMPTA [Suspect]
     Active Substance: OFATUMUMAB
     Dosage: 20 DRP, QMO (GTT)
     Route: 058
     Dates: start: 20220831

REACTIONS (2)
  - Injection site pain [Recovered/Resolved]
  - Injection site pain [Unknown]

NARRATIVE: CASE EVENT DATE: 20220729
